FAERS Safety Report 16008356 (Version 4)
Quarter: 2020Q2

REPORT INFORMATION
  Report Type: Report from Study
  Country: BR (occurrence: BR)
  Receive Date: 20190226
  Receipt Date: 20200420
  Transmission Date: 20200713
  Serious: Yes (Hospitalization, Other)
  Sender: FDA-Public Use
  Company Number: PHHY2019BR043071

PATIENT
  Sex: Male
  Weight: 110 kg

DRUGS (3)
  1. COSENTYX [Suspect]
     Active Substance: SECUKINUMAB
     Dosage: UNK
     Route: 058
     Dates: start: 20200217
  2. COSENTYX [Suspect]
     Active Substance: SECUKINUMAB
     Indication: ANKYLOSING SPONDYLITIS
     Dosage: 150 MG, QMO
     Route: 058
     Dates: start: 20181001
  3. COSENTYX [Suspect]
     Active Substance: SECUKINUMAB
     Dosage: UNK
     Route: 058
     Dates: start: 20190210

REACTIONS (9)
  - Hypertension [Not Recovered/Not Resolved]
  - Ankylosing spondylitis [Unknown]
  - Arthralgia [Recovered/Resolved]
  - Renal disorder [Recovering/Resolving]
  - Arthralgia [Not Recovered/Not Resolved]
  - Back pain [Unknown]
  - Arthropathy [Unknown]
  - Proteinuria [Recovering/Resolving]
  - Arthralgia [Recovered/Resolved]

NARRATIVE: CASE EVENT DATE: 2018
